FAERS Safety Report 19994302 (Version 5)
Quarter: 2022Q1

REPORT INFORMATION
  Report Type: Report from Study
  Country: AE (occurrence: AE)
  Receive Date: 20211026
  Receipt Date: 20220307
  Transmission Date: 20220423
  Serious: Yes (Other)
  Sender: FDA-Public Use
  Company Number: AE-NOVARTISPH-NVSC2021AE239552

PATIENT
  Age: 32 Year
  Sex: Female

DRUGS (1)
  1. GILENYA [Suspect]
     Active Substance: FINGOLIMOD HYDROCHLORIDE
     Indication: Multiple sclerosis
     Dosage: 0.5 MG, QD
     Route: 048
     Dates: start: 201401

REACTIONS (8)
  - Multiple sclerosis relapse [Recovered/Resolved]
  - Hemiparesis [Recovered/Resolved with Sequelae]
  - Facial paralysis [Recovered/Resolved]
  - Ataxia [Recovered/Resolved with Sequelae]
  - Paresis [Recovered/Resolved with Sequelae]
  - Incontinence [Recovered/Resolved with Sequelae]
  - Ear pain [Recovering/Resolving]
  - Lymphopenia [Recovered/Resolved]

NARRATIVE: CASE EVENT DATE: 20211008
